FAERS Safety Report 5923774-7 (Version None)
Quarter: 2008Q4

REPORT INFORMATION
  Report Type: 
  Country: None (occurrence: None)
  Receive Date: 20081020
  Receipt Date: 20081009
  Transmission Date: 20090506
  Serious: Yes (Other)
  Sender: FDA-Public Use
  Company Number: US-CELGENEUS-163-20785-08100760

PATIENT
  Sex: Female

DRUGS (3)
  1. THALOMID [Suspect]
     Indication: MULTIPLE MYELOMA
     Route: 048
     Dates: start: 20070919, end: 20080601
  2. THALOMID [Suspect]
     Route: 048
     Dates: start: 20030828, end: 20070901
  3. OXYCODONE HCL [Concomitant]
     Indication: DRUG USE FOR UNKNOWN INDICATION
     Route: 065

REACTIONS (4)
  - BACK DISORDER [None]
  - NEUROPATHY PERIPHERAL [None]
  - SQUAMOUS CELL CARCINOMA OF SKIN [None]
  - VISION BLURRED [None]
